FAERS Safety Report 9881435 (Version 1)
Quarter: 2014Q1

REPORT INFORMATION
  Report Type: Spontaneous
  Country: US (occurrence: US)
  Receive Date: 20140207
  Receipt Date: 20140207
  Transmission Date: 20141002
  Serious: No
  Sender: FDA-Public Use
  Company Number: US-B.I. PHARMACEUTICALS,INC./RIDGEFIELD-2014-BI-04761BP

PATIENT
  Sex: Female
  Weight: 45 kg

DRUGS (8)
  1. COMBIVENT [Suspect]
     Indication: CHRONIC OBSTRUCTIVE PULMONARY DISEASE
     Dosage: DOSE PER APPLICATION: 18 MCG / 103 MCG; DAILY DOSE: 108MCG/618MCG
     Route: 055
     Dates: end: 20131002
  2. ALBUTEROL [Concomitant]
     Indication: CHRONIC OBSTRUCTIVE PULMONARY DISEASE
     Route: 055
     Dates: start: 2009
  3. METOPROLOL [Concomitant]
     Indication: HYPERTENSION
     Dosage: 100 MG
     Route: 048
     Dates: start: 2002
  4. ALENDRONATE [Concomitant]
     Indication: OSTEOPOROSIS
     Route: 048
     Dates: start: 2009
  5. CITRUCEL [Concomitant]
     Indication: BONE DISORDER
     Route: 048
  6. TRIAMTERENE [Concomitant]
     Dosage: DOSE PER APPLICATION AND DAILY DOSE: 37.5MG/25 MG
     Route: 048
  7. DIAZEPAM [Concomitant]
     Indication: DEPRESSION
     Dosage: 10 MG
     Route: 048
  8. MIRALAX [Concomitant]
     Route: 048

REACTIONS (3)
  - Dizziness [Recovered/Resolved]
  - Wrist fracture [Recovered/Resolved]
  - Fall [Recovered/Resolved]
